FAERS Safety Report 6666392-8 (Version None)
Quarter: 2010Q1

REPORT INFORMATION
  Report Type: 
  Country: None (occurrence: None)
  Receive Date: 20100331
  Receipt Date: 20100324
  Transmission Date: 20100710
  Serious: Yes (Other)
  Sender: FDA-Public Use
  Company Number: A0851820A

PATIENT
  Sex: Male

DRUGS (1)
  1. CALCIUM CARBONATE [Suspect]
     Indication: GASTROOESOPHAGEAL REFLUX DISEASE
     Dosage: 1 TABLET / SINGLE DOSE / ORAL
     Route: 048
     Dates: start: 20100310, end: 20100313

REACTIONS (6)
  - DEHYDRATION [None]
  - DYSGEUSIA [None]
  - NAUSEA [None]
  - PRODUCT CONTAMINATION [None]
  - TREMOR [None]
  - VOMITING [None]
